FAERS Safety Report 24884128 (Version 2)
Quarter: 2025Q1

REPORT INFORMATION
  Report Type: Spontaneous
  Country: CN (occurrence: CN)
  Receive Date: 20250124
  Receipt Date: 20250306
  Transmission Date: 20250409
  Serious: Yes (Death)
  Sender: ROCHE
  Company Number: CN-ROCHE-10000190413

PATIENT
  Age: 88 Year
  Sex: Male
  Weight: 56 kg

DRUGS (2)
  1. ROCEPHIN [Suspect]
     Active Substance: CEFTRIAXONE SODIUM
     Indication: Febrile infection
     Route: 042
     Dates: start: 20250108, end: 20250108
  2. OSELTAMIVIR PHOSPHATE [Suspect]
     Active Substance: OSELTAMIVIR PHOSPHATE
     Indication: Febrile infection
     Route: 065
     Dates: start: 20250108

REACTIONS (2)
  - Anaphylactic shock [Fatal]
  - Suspected product quality issue [Unknown]

NARRATIVE: CASE EVENT DATE: 20250108
